FAERS Safety Report 17963930 (Version 2)
Quarter: 2020Q3

REPORT INFORMATION
  Report Type: Spontaneous
  Country: CZ (occurrence: CZ)
  Receive Date: 20200630
  Receipt Date: 20200715
  Transmission Date: 20201103
  Serious: Yes (Death, Other)
  Sender: FDA-Public Use
  Company Number: CZ-MYLANLABS-2020M1010550

PATIENT
  Age: 45 Year
  Sex: Female

DRUGS (10)
  1. CARBOPLATIN. [Suspect]
     Active Substance: CARBOPLATIN
     Indication: LUNG ADENOCARCINOMA
     Dosage: AREA UNDER THE CURVE=5 (AUC5) (FIRST CYCLE OF A COMBINATION CHEMOTHERAPY)
     Dates: start: 20180911
  2. VARGATEF [Suspect]
     Active Substance: NINTEDANIB
     Indication: LUNG ADENOCARCINOMA
  3. PEMETREXED. [Suspect]
     Active Substance: PEMETREXED
     Indication: NON-SMALL CELL LUNG CANCER
     Dosage: 500 MILLIGRAM/SQ. METER
     Route: 065
     Dates: start: 20181010
  4. PACLITAXEL. [Suspect]
     Active Substance: PACLITAXEL
     Indication: LUNG ADENOCARCINOMA
     Dosage: FIRST CYCLE OF A COMBINATION CHEMOTHERAPY
     Dates: start: 20180911
  5. BEVACIZUMAB. [Suspect]
     Active Substance: BEVACIZUMAB
     Indication: LUNG ADENOCARCINOMA
  6. CRIZOTINIB [Concomitant]
     Active Substance: CRIZOTINIB
     Indication: LUNG ADENOCARCINOMA
  7. PEMETREXED. [Suspect]
     Active Substance: PEMETREXED
     Indication: LUNG ADENOCARCINOMA
     Dosage: 500 MILLIGRAM/SQ. METER
     Dates: start: 20191010
  8. VARGATEF [Suspect]
     Active Substance: NINTEDANIB
     Indication: NON-SMALL CELL LUNG CANCER
     Dosage: 200 MILLIGRAM (0.5 DAY)
     Route: 065
     Dates: start: 20181220
  9. BEVACIZUMAB. [Suspect]
     Active Substance: BEVACIZUMAB
     Indication: NON-SMALL CELL LUNG CANCER
     Dosage: 15 MILLIGRAM/KILOGRAM (FIRST CYCLE OF A COMBINATION CHEMOTHERAPY)
     Route: 065
     Dates: start: 20180911
  10. CRIZOTINIB [Concomitant]
     Active Substance: CRIZOTINIB
     Indication: NON-SMALL CELL LUNG CANCER
     Dosage: 500 MILLIGRAM, BID
     Route: 065
     Dates: start: 20181031

REACTIONS (10)
  - Hypoalbuminaemia [Unknown]
  - Generalised oedema [Unknown]
  - Drug resistance [Unknown]
  - Malignant neoplasm progression [Not Recovered/Not Resolved]
  - Malignant pleural effusion [Unknown]
  - Off label use [Unknown]
  - Ascites [Unknown]
  - Pericardial effusion malignant [Unknown]
  - Pneumonia [Unknown]
  - Drug ineffective [Fatal]

NARRATIVE: CASE EVENT DATE: 20181125
